FAERS Safety Report 5633205-2 (Version None)
Quarter: 2008Q1

REPORT INFORMATION
  Report Type: 
  Country: None (occurrence: None)
  Receive Date: 20080221
  Receipt Date: 20080213
  Transmission Date: 20080703
  Serious: Yes (Hospitalization)
  Sender: FDA-Public Use
  Company Number: TH-ABBOTT-08P-155-0437773-00

PATIENT
  Age: 37 Year
  Sex: Female

DRUGS (3)
  1. REDUCTIL 10MG [Suspect]
     Indication: WEIGHT CONTROL
     Route: 048
     Dates: start: 20070426, end: 20071217
  2. AMLODIPINE [Concomitant]
     Indication: HYPERTENSION
     Route: 048
  3. AMLODIPINE [Concomitant]
     Indication: PROPHYLAXIS

REACTIONS (2)
  - PLATELET COUNT DECREASED [None]
  - RASH [None]
